FAERS Safety Report 5373341-1 (Version None)
Quarter: 2007Q2

REPORT INFORMATION
  Report Type: 
  Country: None (occurrence: None)
  Receive Date: 20070628
  Receipt Date: 20070619
  Transmission Date: 20071010
  Serious: Yes (Death, Life-Threatening, Hospitalization, Disabling)
  Sender: FDA-Public Use
  Company Number: US-BAXTER-800273

PATIENT
  Age: 59 Year
  Sex: Female
  Weight: 89 kg

DRUGS (19)
  1. EXTRANEAL [Suspect]
     Indication: PERITONEAL DIALYSIS
     Dosage: DOSE UNIT:CUBIC CENTIMETER
     Route: 033
     Dates: start: 20031204, end: 20050207
  2. ATENOLOL [Concomitant]
     Route: 048
  3. ROCALTROL [Concomitant]
     Route: 048
  4. FUROSEMIDE [Concomitant]
     Route: 048
  5. COUMADIN [Concomitant]
     Dosage: DOSE UNIT:UNKNOWN
     Route: 048
  6. PRINIVIL [Concomitant]
     Route: 048
     Dates: start: 20041227
  7. ZOCOR [Concomitant]
     Route: 048
  8. EPOGEN [Concomitant]
     Route: 058
  9. RENAGEL [Concomitant]
     Route: 048
  10. BACTROBAN [Concomitant]
     Dosage: DOSE UNIT:UNKNOWN
     Route: 061
  11. MIRALAX [Concomitant]
     Dosage: DOSE UNIT:UNKNOWN
     Route: 048
  12. POTASSIUM CHLORIDE [Concomitant]
     Route: 048
  13. NEPHROX [Concomitant]
     Route: 048
  14. LANTUS [Concomitant]
     Route: 058
  15. REGLAN [Concomitant]
     Route: 048
  16. REGULAR INSULIN [Concomitant]
     Route: 058
  17. HYTRIN [Concomitant]
     Route: 048
  18. ZAROXOLYN [Concomitant]
     Route: 048
  19. VITAMIN B6 [Concomitant]
     Route: 048

REACTIONS (5)
  - APALLIC SYNDROME [None]
  - DEATH [None]
  - DEVICE INTERACTION [None]
  - HYPOGLYCAEMIA [None]
  - HYPOGLYCAEMIC COMA [None]
